FAERS Safety Report 9192388 (Version 1)
Quarter: 2013Q1

REPORT INFORMATION
  Report Type: Spontaneous
  Country: US (occurrence: None)
  Receive Date: 20120703
  Receipt Date: 20120703
  Transmission Date: 20140127
  Serious: No
  Sender: FDA-Public Use
  Company Number: PHEH2012US009311

PATIENT
  Age: 51 Year
  Sex: Female
  Weight: 94.3 kg

DRUGS (11)
  1. GILENYA (FTY)CAPSULE, 0.5MG [Suspect]
     Route: 048
  2. CRESTOR (ROSUVASTATIN CALCIUM) TABLET [Concomitant]
  3. OXYBUTYNIN(OXYBUTYNIN) TABLET [Concomitant]
  4. SPIRONOLACTANE (SPIRONOLACTANE) TABLET [Concomitant]
  5. VITAMIN D (ERGOCALCIFEROL) [Concomitant]
  6. PROVIGIL (MODAFINIL) TABLET [Concomitant]
  7. OMEPRAZOLE (OMEPRAZOLE) CAPSULE [Concomitant]
  8. SOLEDUM(CINEOLE) TABLET [Concomitant]
  9. BIOTIN (BIOTIN) CAPSULE [Concomitant]
  10. MELOXICAM (MELOXICAM) TABLET [Concomitant]
  11. CYMBALTA (DULOXETINE HYDROCHLORIDE) CAPSULE [Concomitant]

REACTIONS (3)
  - Muscle spasms [None]
  - Arthralgia [None]
  - Musculoskeletal stiffness [None]
